FAERS Safety Report 12955051 (Version 1)
Quarter: 2016Q4

REPORT INFORMATION
  Report Type: Spontaneous
  Country: TN (occurrence: TN)
  Receive Date: 20161118
  Receipt Date: 20161118
  Transmission Date: 20170207
  Serious: Yes (Other)
  Sender: FDA-Public Use
  Company Number: TN-G+W LABS-GW2016TN000178

PATIENT

DRUGS (1)
  1. METRONIDAZOLE. [Suspect]
     Active Substance: METRONIDAZOLE
     Indication: AMOEBIC DYSENTERY
     Dosage: UNK
     Route: 048

REACTIONS (1)
  - Toxic optic neuropathy [Recovered/Resolved]
